FAERS Safety Report 10256708 (Version 1)
Quarter: 2014Q2

REPORT INFORMATION
  Report Type: Report from Study
  Country: FR (occurrence: FR)
  Receive Date: 20140624
  Receipt Date: 20140624
  Transmission Date: 20141212
  Serious: Yes (Hospitalization, Other)
  Sender: FDA-Public Use
  Company Number: FR-JNJFOC-20131018159

PATIENT
  Age: 70 Year
  Sex: Male
  Weight: 100 kg

DRUGS (20)
  1. XARELTO [Suspect]
     Indication: THROMBOSIS PROPHYLAXIS
     Route: 048
     Dates: start: 20130320, end: 20130728
  2. XARELTO [Suspect]
     Indication: CEREBROVASCULAR ACCIDENT PROPHYLAXIS
     Route: 048
     Dates: start: 20130320, end: 20130728
  3. EUPANTOL [Concomitant]
     Route: 065
     Dates: start: 20090603, end: 20130611
  4. TAHOR [Concomitant]
     Route: 065
     Dates: start: 20090603, end: 20130422
  5. TAHOR [Concomitant]
     Route: 065
     Dates: start: 20130422
  6. EXFORGE [Concomitant]
     Route: 065
     Dates: start: 20130422, end: 20130611
  7. EXFORGE [Concomitant]
     Route: 065
     Dates: start: 20090820, end: 20130422
  8. LODOZ [Concomitant]
     Route: 065
     Dates: start: 20100104, end: 20130611
  9. HYPERIUM [Concomitant]
     Route: 065
     Dates: start: 20130120, end: 20130422
  10. URAPIDIL [Concomitant]
     Route: 065
     Dates: start: 20130422, end: 20130611
  11. CORDARONE [Concomitant]
     Route: 065
     Dates: start: 20130612
  12. CORDARONE [Concomitant]
     Route: 065
     Dates: start: 20130518, end: 20130611
  13. TEMERIT [Concomitant]
     Route: 065
     Dates: start: 20130611
  14. LOSARTAN/HYDROCHLOROTHIAZIDE [Concomitant]
     Route: 065
     Dates: start: 20130611
  15. EUPRESSYL [Concomitant]
     Route: 065
     Dates: start: 20130611
  16. STILNOX [Concomitant]
     Route: 065
     Dates: start: 20130705
  17. AMLODIPINE [Concomitant]
     Route: 065
     Dates: start: 20130801
  18. INEXIUM [Concomitant]
     Route: 065
     Dates: start: 20130801
  19. KARDEGIC [Concomitant]
     Route: 065
     Dates: start: 20090603, end: 20130728
  20. KARDEGIC [Concomitant]
     Route: 065
     Dates: start: 20130801

REACTIONS (1)
  - Embolic stroke [Recovered/Resolved]
